FAERS Safety Report 15936948 (Version 4)
Quarter: 2019Q2

REPORT INFORMATION
  Report Type: Spontaneous
  Country: US (occurrence: US)
  Receive Date: 20190208
  Receipt Date: 20190426
  Transmission Date: 20190711
  Serious: Yes (Other)
  Sender: FDA-Public Use
  Company Number: US-ASTRAZENECA-2018SF14000

PATIENT
  Age: 777 Month
  Sex: Female
  Weight: 58.1 kg

DRUGS (19)
  1. PRILOSEC [Suspect]
     Active Substance: OMEPRAZOLE MAGNESIUM
     Route: 048
     Dates: start: 19950101, end: 20170214
  2. PREVACID [Suspect]
     Active Substance: LANSOPRAZOLE
     Indication: GASTROOESOPHAGEAL REFLUX DISEASE
     Route: 065
     Dates: start: 19950510, end: 20170214
  3. ATENOLOL. [Concomitant]
     Active Substance: ATENOLOL
     Route: 065
     Dates: start: 20161024
  4. NEXIUM [Suspect]
     Active Substance: ESOMEPRAZOLE MAGNESIUM
     Indication: GASTROOESOPHAGEAL REFLUX DISEASE
     Route: 048
     Dates: start: 20010220, end: 20170214
  5. PREVACID [Suspect]
     Active Substance: LANSOPRAZOLE
     Indication: GASTROOESOPHAGEAL REFLUX DISEASE
     Route: 065
     Dates: start: 19950510, end: 20170214
  6. NEURONTIN [Concomitant]
     Active Substance: GABAPENTIN
  7. PROTONIX [Suspect]
     Active Substance: PANTOPRAZOLE SODIUM
     Indication: GASTROOESOPHAGEAL REFLUX DISEASE
     Route: 065
     Dates: start: 20161024
  8. VITAMIN C [Concomitant]
     Active Substance: ASCORBIC ACID
     Route: 065
  9. PRILOSEC [Suspect]
     Active Substance: OMEPRAZOLE MAGNESIUM
     Route: 048
  10. POTASSIUM CHLORIDE. [Concomitant]
     Active Substance: POTASSIUM CHLORIDE
  11. PREVACID IV [Suspect]
     Active Substance: LANSOPRAZOLE
     Route: 065
  12. REMERON [Concomitant]
     Active Substance: MIRTAZAPINE
     Route: 065
     Dates: start: 20161024
  13. LEVOTHYROXINE. [Concomitant]
     Active Substance: LEVOTHYROXINE
     Route: 065
     Dates: start: 20161024
  14. VALIUM [Concomitant]
     Active Substance: DIAZEPAM
     Route: 065
     Dates: start: 20161024
  15. AMOXICILLIN. [Concomitant]
     Active Substance: AMOXICILLIN
  16. PROTONIX [Suspect]
     Active Substance: PANTOPRAZOLE SODIUM
     Indication: GASTROOESOPHAGEAL REFLUX DISEASE
     Route: 065
     Dates: start: 20000202, end: 20170214
  17. NEXIUM [Suspect]
     Active Substance: ESOMEPRAZOLE MAGNESIUM
     Indication: GASTROOESOPHAGEAL REFLUX DISEASE
     Route: 048
     Dates: start: 20010220, end: 20170214
  18. EFFEXOR [Concomitant]
     Active Substance: VENLAFAXINE HYDROCHLORIDE
     Route: 065
     Dates: start: 20161024
  19. PRAVASTATIN. [Concomitant]
     Active Substance: PRAVASTATIN
     Route: 065
     Dates: start: 20161024

REACTIONS (4)
  - Acute kidney injury [Not Recovered/Not Resolved]
  - Renal injury [Unknown]
  - Chronic kidney disease [Not Recovered/Not Resolved]
  - Renal failure [Unknown]

NARRATIVE: CASE EVENT DATE: 201412
